FAERS Safety Report 10229404 (Version 1)
Quarter: 2014Q2

REPORT INFORMATION
  Report Type: Spontaneous
  Country: US (occurrence: None)
  Receive Date: 20140609
  Receipt Date: 20140609
  Transmission Date: 20141212
  Serious: Yes (Other)
  Sender: FDA-Public Use
  Company Number: SYM-2014-21347

PATIENT
  Age: 41 Year
  Sex: Female
  Weight: 63.49 kg

DRUGS (2)
  1. TRETINOIN [Suspect]
     Indication: ROSACEA
     Dosage: SINGLE, TOPICAL
     Route: 061
     Dates: start: 20140509, end: 20140509
  2. TRETINOIN [Suspect]
     Indication: SCAR
     Dosage: SINGLE, TOPICAL
     Route: 061
     Dates: start: 20140509, end: 20140509

REACTIONS (8)
  - Hypersensitivity [None]
  - Rash [None]
  - Erythema [None]
  - Pruritus [None]
  - Insomnia [None]
  - Dry skin [None]
  - Eye swelling [None]
  - Skin discolouration [None]
